FAERS Safety Report 20714180 (Version 3)
Quarter: 2022Q4

REPORT INFORMATION
  Report Type: Spontaneous
  Country: FR (occurrence: FR)
  Receive Date: 20220415
  Receipt Date: 20221125
  Transmission Date: 20230113
  Serious: Yes (Life-Threatening, Other)
  Sender: FDA-Public Use
  Company Number: FR-BRISTOL-MYERS SQUIBB COMPANY-2022-020149

PATIENT
  Age: 63 Year
  Sex: Male

DRUGS (3)
  1. ORENCIA [Suspect]
     Active Substance: ABATACEPT
     Indication: Rheumatoid arthritis
     Dosage: DOSE : 1 INJECTION;     FREQ : EACH WEEK
     Route: 058
     Dates: start: 20160201, end: 20211207
  2. ORENCIA [Suspect]
     Active Substance: ABATACEPT
     Route: 058
     Dates: start: 2016, end: 20220407
  3. ARAVA [Concomitant]
     Active Substance: LEFLUNOMIDE
     Indication: Rheumatoid arthritis
     Dosage: 1 TABLET PER DAY
     Route: 048
     Dates: start: 2015

REACTIONS (1)
  - Prostatic adenoma [Unknown]

NARRATIVE: CASE EVENT DATE: 20211207
